FAERS Safety Report 4308061-5 (Version None)
Quarter: 2004Q1

REPORT INFORMATION
  Report Type: 
  Country: None (occurrence: None)
  Receive Date: 20040301
  Receipt Date: 20030416
  Transmission Date: 20041129
  Serious: No
  Sender: FDA-Public Use
  Company Number: US-BRISTOL-MYERS SQUIBB COMPANY-12249421

PATIENT
  Age: 68 Year
  Sex: Female
  Weight: 76 kg

DRUGS (7)
  1. GLUCOPHAGE [Suspect]
     Indication: DIABETES MELLITUS
     Route: 048
  2. GLYBURIDE [Concomitant]
     Indication: DIABETES MELLITUS
     Route: 048
  3. PLAVIX [Concomitant]
  4. LOPRESSOR [Concomitant]
  5. SYNTHROID [Concomitant]
  6. ZOCOR [Concomitant]
  7. MULTIVITAMIN [Concomitant]

REACTIONS (1)
  - DIARRHOEA [None]
